FAERS Safety Report 9657708 (Version 1)
Quarter: 2013Q4

REPORT INFORMATION
  Report Type: Spontaneous
  Country: IT (occurrence: None)
  Receive Date: 20131029
  Receipt Date: 20131029
  Transmission Date: 20140711
  Serious: No
  Sender: FDA-Public Use
  Company Number: AUR-APL-2013-08970

PATIENT
  Age: 30 Year
  Sex: Female

DRUGS (2)
  1. CITALOPRAM [Suspect]
     Indication: PRODUCT USED FOR UNKNOWN INDICATION
     Dosage: 700MG, TOTAL, ORAL
     Route: 048
     Dates: start: 20130715, end: 20130715
  2. XANAX [Suspect]
     Indication: PRODUCT USED FOR UNKNOWN INDICATION
     Dosage: 5MG TOTAL, ORAL
     Route: 048
     Dates: start: 20130715, end: 20130715

REACTIONS (2)
  - Somnolence [None]
  - Drug abuse [None]
